FAERS Safety Report 16661571 (Version 1)
Quarter: 2019Q3

REPORT INFORMATION
  Report Type: Spontaneous
  Country: MX (occurrence: MX)
  Receive Date: 20190802
  Receipt Date: 20190802
  Transmission Date: 20191004
  Serious: Yes (Other)
  Sender: FDA-Public Use
  Company Number: MX-REGENERON PHARMACEUTICALS, INC.-2019-45468

PATIENT

DRUGS (2)
  1. EYLEA [Suspect]
     Active Substance: AFLIBERCEPT
     Dosage: UNK, PRN
  2. EYLEA [Suspect]
     Active Substance: AFLIBERCEPT
     Indication: HAEMANGIOMA OF RETINA
     Dosage: 5 DOSES Q3MON

REACTIONS (6)
  - Haemangioma of retina [Unknown]
  - Off label use [Unknown]
  - Retinal fibrosis [Unknown]
  - Retinal disorder [Unknown]
  - Tractional retinal detachment [Unknown]
  - Product use in unapproved indication [Unknown]
